FAERS Safety Report 9542945 (Version 1)
Quarter: 2013Q3

REPORT INFORMATION
  Report Type: Spontaneous
  Country: FR (occurrence: FR)
  Receive Date: 20130923
  Receipt Date: 20130923
  Transmission Date: 20140515
  Serious: Yes (Other)
  Sender: FDA-Public Use
  Company Number: FR-SANOFI-AVENTIS-2013SA092001

PATIENT
  Age: 34 Year
  Sex: Female

DRUGS (4)
  1. RIFINAH [Suspect]
     Indication: PRODUCT USED FOR UNKNOWN INDICATION
     Route: 048
     Dates: start: 20130408, end: 20130527
  2. ENBREL [Suspect]
     Indication: PRODUCT USED FOR UNKNOWN INDICATION
     Dosage: 2 INJECTIONS
     Route: 058
     Dates: start: 20130509, end: 20130515
  3. CORTANCYL [Concomitant]
  4. METHOTREXATE [Concomitant]
     Dates: start: 2012, end: 20130525

REACTIONS (4)
  - Abdominal pain [Recovering/Resolving]
  - Hepatitis [Recovering/Resolving]
  - Liver function test abnormal [Recovering/Resolving]
  - Chills [Recovering/Resolving]
